FAERS Safety Report 4961719-7 (Version None)
Quarter: 2006Q1

REPORT INFORMATION
  Report Type: 
  Country: None (occurrence: None)
  Receive Date: 20060329
  Receipt Date: 20060320
  Transmission Date: 20060701
  Serious: Yes (Hospitalization)
  Sender: FDA-Public Use
  Company Number: TPG2006A00105

PATIENT
  Age: 79 Year
  Sex: Male

DRUGS (2)
  1. LEUPROLIDE ACETATE [Suspect]
     Indication: PROSTATE CANCER
     Dosage: 11.25 MG (11.25 MG, 1 IN 3 M), SUBCUTANEOUS
     Route: 058
     Dates: start: 20051206
  2. ZOMETA [Suspect]
     Indication: PROSTATE CANCER
     Dosage: 4 MG (4 MCI, 1 IN 1 M), INTRAVENOUS
     Route: 042
     Dates: start: 20051206, end: 20060109

REACTIONS (2)
  - HYPOCALCAEMIA [None]
  - RHABDOMYOLYSIS [None]
